FAERS Safety Report 5810091-9 (Version None)
Quarter: 2008Q3

REPORT INFORMATION
  Report Type: 
  Country: None (occurrence: None)
  Receive Date: 20080715
  Receipt Date: 20080714
  Transmission Date: 20090109
  Serious: Yes (Other)
  Sender: FDA-Public Use
  Company Number: DK-BRISTOL-MYERS SQUIBB COMPANY-14157861

PATIENT
  Age: 9 Year
  Sex: Male
  Weight: 40 kg

DRUGS (4)
  1. ABILIFY [Suspect]
     Indication: TIC
  2. ABILIFY [Interacting]
     Indication: ABNORMAL BEHAVIOUR
  3. ABILIFY [Interacting]
     Indication: ATTENTION DEFICIT/HYPERACTIVITY DISORDER
  4. STRATTERA [Interacting]
     Indication: ATTENTION DEFICIT/HYPERACTIVITY DISORDER
     Dosage: 03DEC07: DOSE INCREASED TO 25 MG IN 2007: INCREASED TO 36MG 10DEC07: INCREASED TO 40MG
     Route: 048
     Dates: start: 20071126, end: 20071220

REACTIONS (3)
  - DRUG INTERACTION [None]
  - NEGATIVISM [None]
  - TOURETTE'S DISORDER [None]
